FAERS Safety Report 8371960-1 (Version None)
Quarter: 2012Q2

REPORT INFORMATION
  Report Type: 
  Country: None (occurrence: None)
  Receive Date: 20120518
  Receipt Date: 20120514
  Transmission Date: 20120825
  Serious: Yes (Hospitalization, Disabling, Other)
  Sender: FDA-Public Use
  Company Number: US-MERCK-1202USA02459

PATIENT
  Age: 43 Year
  Sex: Female
  Weight: 76 kg

DRUGS (1)
  1. FOSAMAX [Suspect]
     Route: 048

REACTIONS (52)
  - FEMUR FRACTURE [None]
  - GASTRITIS [None]
  - DIVERTICULUM [None]
  - GINGIVAL RECESSION [None]
  - MYOCARDIAL INFARCTION [None]
  - ANAEMIA POSTOPERATIVE [None]
  - DENTAL PLAQUE [None]
  - BRUXISM [None]
  - URINARY INCONTINENCE [None]
  - TOOTH FRACTURE [None]
  - OSTEOARTHRITIS [None]
  - BREAST DISCOMFORT [None]
  - BREAST CANCER RECURRENT [None]
  - INCISION SITE ERYTHEMA [None]
  - GINGIVAL BLEEDING [None]
  - DRUG HYPERSENSITIVITY [None]
  - PALPITATIONS [None]
  - VITAMIN D DEFICIENCY [None]
  - TRAUMATIC OCCLUSION [None]
  - MUSCULOSKELETAL PAIN [None]
  - LOW TURNOVER OSTEOPATHY [None]
  - KIDNEY INFECTION [None]
  - FALL [None]
  - RIB FRACTURE [None]
  - SENSITIVITY OF TEETH [None]
  - HIATUS HERNIA [None]
  - GINGIVAL DISORDER [None]
  - CHOLECYSTITIS CHRONIC [None]
  - CHOLELITHIASIS [None]
  - GASTROINTESTINAL DISORDER [None]
  - TEMPOROMANDIBULAR JOINT SYNDROME [None]
  - JAW DISORDER [None]
  - CELLULITIS [None]
  - CHEST X-RAY ABNORMAL [None]
  - ANXIETY [None]
  - BONE LOSS [None]
  - DEPRESSION [None]
  - PAIN IN EXTREMITY [None]
  - OTITIS MEDIA [None]
  - IRRITABLE BOWEL SYNDROME [None]
  - HELICOBACTER TEST POSITIVE [None]
  - GASTRIC ULCER [None]
  - BREAST CANCER [None]
  - ANIMAL BITE [None]
  - DENTAL CARIES [None]
  - GINGIVAL PAIN [None]
  - NASOPHARYNGITIS [None]
  - ABDOMINAL PAIN UPPER [None]
  - DIZZINESS [None]
  - PERIODONTAL DISEASE [None]
  - GASTROOESOPHAGEAL REFLUX DISEASE [None]
  - TOOTHACHE [None]
